FAERS Safety Report 9557812 (Version 1)
Quarter: 2013Q3

REPORT INFORMATION
  Report Type: Spontaneous
  Country: US (occurrence: None)
  Receive Date: 20130724
  Receipt Date: 20130724
  Transmission Date: 20140515
  Serious: No
  Sender: FDA-Public Use
  Company Number: PHEH2013US007191

PATIENT
  Age: 54 Year
  Sex: Female
  Weight: 74.8 kg

DRUGS (11)
  1. GILENYA [Suspect]
     Route: 048
     Dates: start: 20130318
  2. TRAMADOL [Concomitant]
  3. CYCLOBENZAPRINE [Concomitant]
  4. TOPIRAMATE [Concomitant]
  5. OMEPRAZOLE [Concomitant]
  6. CYMBALTA (DULOXETINE HYDROCHLORIDE) [Concomitant]
  7. PRAVASTATIN [Concomitant]
  8. LISINOPRIL [Concomitant]
  9. GRALISE (GABAPENTIN) [Concomitant]
  10. VITAMIN D (ERGOCALCIFEROL) [Concomitant]
  11. IRON (IRON) [Concomitant]

REACTIONS (3)
  - Hypersomnia [None]
  - Blood iron decreased [None]
  - Fatigue [None]
